FAERS Safety Report 8791922 (Version 1)
Quarter: 2012Q4

REPORT INFORMATION
  Report Type: 
  Country: AU (occurrence: AU)
  Receive Date: 20120918
  Receipt Date: 20120918
  Transmission Date: 20130627
  Serious: Yes (Other)
  Sender: FDA-Public Use
  Company Number: AU-PFIZER INC-2012228812

PATIENT
  Age: 40 Year
  Sex: Male

DRUGS (2)
  1. EFEXOR XR [Suspect]
     Indication: MAJOR DEPRESSION
     Dosage: 75 mg, UNK
     Route: 048
  2. EFEXOR XR [Suspect]
     Dosage: 150 mg, 1x/day
     Route: 048

REACTIONS (4)
  - Orthostatic hypotension [Unknown]
  - Hypotension [Unknown]
  - Fall [Unknown]
  - Head injury [Unknown]
